FAERS Safety Report 12089945 (Version 1)
Quarter: 2016Q1

REPORT INFORMATION
  Report Type: Spontaneous
  Country: US (occurrence: US)
  Receive Date: 20160218
  Receipt Date: 20160218
  Transmission Date: 20160526
  Serious: Yes (Hospitalization, Other)
  Sender: FDA-Public Use
  Company Number: US-HORIZON-RAV-0030-2016

PATIENT
  Age: 11 Year
  Sex: Female

DRUGS (5)
  1. PROTEIN [Concomitant]
     Active Substance: PROTEIN
     Indication: PRODUCT USED FOR UNKNOWN INDICATION
     Dosage: 14 G
  2. RAVICTI [Suspect]
     Active Substance: GLYCEROL PHENYLBUTYRATE
     Indication: ORNITHINE TRANSCARBAMOYLASE DEFICIENCY
     Dosage: 3 ML AM; 2 ML AFTER SCHOOL; 2 ML BEFORE BEDTIME
  3. CITRULLINE [Concomitant]
     Active Substance: CITRULLINE
     Indication: PRODUCT USED FOR UNKNOWN INDICATION
     Dosage: 10 G
  4. CYCLINEX [Concomitant]
     Indication: PRODUCT USED FOR UNKNOWN INDICATION
     Dosage: 100 G
  5. LEVOCARNITINE. [Concomitant]
     Active Substance: LEVOCARNITINE
     Indication: PRODUCT USED FOR UNKNOWN INDICATION

REACTIONS (8)
  - Ammonia increased [Unknown]
  - Irritability [Unknown]
  - Arthropod bite [Unknown]
  - Vomiting [Unknown]
  - Impulsive behaviour [Unknown]
  - Pyrexia [Unknown]
  - Nausea [Unknown]
  - Developmental delay [Unknown]

NARRATIVE: CASE EVENT DATE: 201508
